FAERS Safety Report 16930851 (Version 1)
Quarter: 2019Q4

REPORT INFORMATION
  Report Type: Spontaneous
  Country: US (occurrence: US)
  Receive Date: 20191017
  Receipt Date: 20191017
  Transmission Date: 20200122
  Serious: Yes (Life-Threatening, Hospitalization, Disabling, Other)
  Sender: FDA-Public Use
  Company Number: None

PATIENT
  Age: 33 Year
  Sex: Female
  Weight: 90 kg

DRUGS (1)
  1. LEVOFLOXACIN. [Suspect]
     Active Substance: LEVOFLOXACIN
     Indication: PNEUMONIA
     Dosage: ?          QUANTITY:1 CAPSULE(S);?
     Route: 048
     Dates: start: 20181201, end: 20181207

REACTIONS (8)
  - Nerve injury [None]
  - Sepsis [None]
  - Bursitis [None]
  - Bacterial infection [None]
  - Neuropathy peripheral [None]
  - Gait inability [None]
  - Muscle spasms [None]
  - Walking aid user [None]

NARRATIVE: CASE EVENT DATE: 20181208
